FAERS Safety Report 4635740-2 (Version None)
Quarter: 2005Q2

REPORT INFORMATION
  Report Type: 
  Country: None (occurrence: None)
  Receive Date: 20050413
  Receipt Date: 20050308
  Transmission Date: 20051028
  Serious: Yes (Hospitalization)
  Sender: FDA-Public Use
  Company Number: 2005010750

PATIENT
  Age: 65 Year
  Sex: Female
  Weight: 106.5953 kg

DRUGS (13)
  1. CELEBREX [Suspect]
     Indication: ARTHRITIS
     Dosage: ORAL
     Route: 048
     Dates: start: 19980101
  2. BEXTRA [Suspect]
     Indication: ARTHRITIS
     Dosage: 10 MG (10 MG, 1 IN 1 D), ORAL
     Route: 048
     Dates: start: 20030701
  3. CALCIUM (CALCIUM) [Concomitant]
  4. MULTIVITAMINS (ASCORBIC ACID, ERGOCALCIFEROL, FOLIC ACID, NICOTINAMIDE [Concomitant]
  5. CHONDROITIN/GLUCOSAMINE (CHONDROITIN, GLUCOSAMINE) [Concomitant]
  6. ACETAMINOPHEN [Concomitant]
  7. FUROSEMIDE [Concomitant]
  8. MECLOZINE (MECLOZINE) [Concomitant]
  9. POTASSIUM ACETATE [Concomitant]
  10. NITROGLYCERIN [Concomitant]
  11. INSULIN [Concomitant]
  12. ASPIRIN [Concomitant]
  13. THYROID TAB [Concomitant]

REACTIONS (6)
  - ARTHRITIS [None]
  - ASTHENIA [None]
  - CARDIAC DISORDER [None]
  - CHEST PAIN [None]
  - DYSPNOEA [None]
  - FEELING ABNORMAL [None]
